FAERS Safety Report 24220667 (Version 1)
Quarter: 2024Q3

REPORT INFORMATION
  Report Type: Spontaneous
  Country: FR (occurrence: FR)
  Receive Date: 20240818
  Receipt Date: 20240818
  Transmission Date: 20241017
  Serious: Yes (Other)
  Sender: CIPLA
  Company Number: FR-AFSSAPS-PB2024000837

PATIENT

DRUGS (1)
  1. RIVAROXABAN [Suspect]
     Active Substance: RIVAROXABAN
     Indication: Infarction
     Dosage: 1 DOSAGE FORM, QD
     Route: 048
     Dates: start: 20240523, end: 20240723

REACTIONS (2)
  - Therapeutic response changed [Not Recovered/Not Resolved]
  - Haemorrhage [Not Recovered/Not Resolved]

NARRATIVE: CASE EVENT DATE: 20240720
